FAERS Safety Report 16211226 (Version 2)
Quarter: 2019Q2

REPORT INFORMATION
  Report Type: Spontaneous
  Country: NO (occurrence: NO)
  Receive Date: 20190418
  Receipt Date: 20190424
  Transmission Date: 20190711
  Serious: Yes (Hospitalization, Disabling, Other)
  Sender: FDA-Public Use
  Company Number: NO-TEVA-2019-NO-1039321

PATIENT
  Age: 65 Year
  Sex: Female

DRUGS (7)
  1. LISINOPRIL RATIOPHARM [Suspect]
     Active Substance: LISINOPRIL
     Dosage: 10 MILLIGRAM DAILY;
     Route: 048
     Dates: start: 201812
  2. PROGYNOVA [Concomitant]
     Active Substance: ESTRADIOL VALERATE
  3. METOPROLOL. [Concomitant]
     Active Substance: METOPROLOL
  4. LIOTHYRONIN [Concomitant]
     Active Substance: LIOTHYRONINE SODIUM
  5. LISINOPRIL RATIOPHARM [Suspect]
     Active Substance: LISINOPRIL
     Dosage: 5 MILLIGRAM DAILY;
     Route: 048
     Dates: end: 201812
  6. LISINOPRIL RATIOPHARM [Suspect]
     Active Substance: LISINOPRIL
     Dosage: 15 MILLIGRAM DAILY; 5+10 MG
     Route: 048
     Dates: start: 201903, end: 20190331
  7. LEVAXIN [Concomitant]
     Active Substance: LEVOTHYROXINE SODIUM

REACTIONS (8)
  - Swollen tongue [Recovered/Resolved]
  - Dyspnoea [Recovered/Resolved]
  - Diarrhoea [Recovered/Resolved]
  - Hypersensitivity [Recovered/Resolved]
  - Rhinorrhoea [Recovered/Resolved]
  - Pulmonary oedema [Recovered/Resolved]
  - Lip blister [Recovered/Resolved]
  - Malaise [Recovered/Resolved]

NARRATIVE: CASE EVENT DATE: 2017
